FAERS Safety Report 8777174 (Version 3)
Quarter: 2018Q2

REPORT INFORMATION
  Report Type: Spontaneous
  Country: US (occurrence: US)
  Receive Date: 20120911
  Receipt Date: 20180616
  Transmission Date: 20180711
  Serious: No
  Sender: FDA-Public Use
  Company Number: US-009507513-1207USA004643

PATIENT
  Age: 31 Year
  Sex: Female

DRUGS (7)
  1. MAXALT [Suspect]
     Active Substance: RIZATRIPTAN BENZOATE
     Indication: MIGRAINE
     Dosage: UNK
     Route: 048
     Dates: end: 201203
  2. VITAMINS (UNSPECIFIED) [Concomitant]
     Active Substance: VITAMINS
  3. TYLENOL [Concomitant]
     Active Substance: ACETAMINOPHEN
  4. SYNTHROID [Concomitant]
     Active Substance: LEVOTHYROXINE SODIUM
     Dosage: 150 MG, UNK
  5. LEVOTHROID [Concomitant]
     Active Substance: LEVOTHYROXINE SODIUM
     Dosage: 175 MICROGRAM, QOD
     Route: 048
  6. RELPAX [Concomitant]
     Active Substance: ELETRIPTAN HYDROBROMIDE
     Dosage: 40 MG, ONCE
     Route: 048
  7. CAFFEINE. [Concomitant]
     Active Substance: CAFFEINE

REACTIONS (6)
  - Breast tenderness [Unknown]
  - Fatigue [Unknown]
  - Pruritus [Unknown]
  - Maternal exposure before pregnancy [Unknown]
  - Nausea [Unknown]
  - Tinea infection [Unknown]

NARRATIVE: CASE EVENT DATE: 201203
